FAERS Safety Report 9981419 (Version 1)
Quarter: 2014Q1

REPORT INFORMATION
  Report Type: Spontaneous
  Country: US (occurrence: None)
  Receive Date: 20140306
  Receipt Date: 20140306
  Transmission Date: 20141002
  Serious: No
  Sender: FDA-Public Use
  Company Number: None

PATIENT
  Age: 12 Year
  Sex: Female
  Weight: 67.13 kg

DRUGS (1)
  1. SYNTHROID GENERIC [Suspect]
     Indication: HYPOTHYROIDISM
     Route: 048
     Dates: start: 20140221, end: 20140301

REACTIONS (4)
  - Hair disorder [None]
  - Weight increased [None]
  - Product quality issue [None]
  - Product substitution issue [None]
